FAERS Safety Report 6983672-7 (Version None)
Quarter: 2010Q3

REPORT INFORMATION
  Report Type: 
  Country: None (occurrence: None)
  Receive Date: 20100914
  Receipt Date: 20081201
  Transmission Date: 20110219
  Serious: No
  Sender: FDA-Public Use
  Company Number: US-WYE-H07042808

PATIENT
  Age: 53 Year
  Sex: Female
  Weight: 49.03 kg

DRUGS (1)
  1. ADVIL LIQUI-GELS [Suspect]
     Indication: HEADACHE
     Dosage: 2 CAPSULES AS NEEDED
     Route: 048

REACTIONS (1)
  - BURNING SENSATION [None]
